FAERS Safety Report 19743149 (Version 1)
Quarter: 2021Q3

REPORT INFORMATION
  Report Type: Spontaneous
  Country: US (occurrence: US)
  Receive Date: 20210825
  Receipt Date: 20210825
  Transmission Date: 20211014
  Serious: Yes (Other)
  Sender: FDA-Public Use
  Company Number: US-GLAXOSMITHKLINE-US2021GSK176977

PATIENT
  Sex: Female

DRUGS (6)
  1. RANITIDINE. [Suspect]
     Active Substance: RANITIDINE
     Indication: GASTROOESOPHAGEAL REFLUX DISEASE
     Dosage: 300 MG, QD
     Route: 065
     Dates: start: 200412, end: 200801
  2. RANITIDINE. [Suspect]
     Active Substance: RANITIDINE
     Indication: GASTROOESOPHAGEAL REFLUX DISEASE
     Dosage: 300 MG, QD
     Route: 065
     Dates: start: 200412, end: 200801
  3. RANITIDINE. [Suspect]
     Active Substance: RANITIDINE
     Indication: COUGH
  4. RANITIDINE. [Suspect]
     Active Substance: RANITIDINE
     Indication: DYSPHONIA
  5. RANITIDINE. [Suspect]
     Active Substance: RANITIDINE
     Indication: DYSPHONIA
  6. RANITIDINE. [Suspect]
     Active Substance: RANITIDINE
     Indication: COUGH

REACTIONS (1)
  - Breast cancer [Unknown]
